FAERS Safety Report 25237329 (Version 1)
Quarter: 2025Q2

REPORT INFORMATION
  Report Type: Spontaneous
  Country: US (occurrence: US)
  Receive Date: 20250425
  Receipt Date: 20250425
  Transmission Date: 20250716
  Serious: Yes (Hospitalization, Other)
  Sender: AMGEN
  Company Number: US-AMGEN-USASP2025076538

PATIENT
  Age: 58 Year
  Sex: Female

DRUGS (2)
  1. PREDNISONE [Suspect]
     Active Substance: PREDNISONE
     Indication: Graft versus host disease
     Route: 065
  2. TRIAMCINOLONE [Concomitant]
     Active Substance: TRIAMCINOLONE
     Indication: Graft versus host disease

REACTIONS (4)
  - Graft versus host disease in skin [Unknown]
  - Graft versus host disease oral [Unknown]
  - Colitis [Unknown]
  - Chronic graft versus host disease [Unknown]
